FAERS Safety Report 8966693 (Version 1)
Quarter: 2012Q4

REPORT INFORMATION
  Report Type: 
  Country: GB (occurrence: GB)
  Receive Date: 20121214
  Receipt Date: 20121214
  Transmission Date: 20130627
  Serious: Yes (Other)
  Sender: FDA-Public Use
  Company Number: GB-009507513-1212GBR003870

PATIENT
  Age: 11 Month

DRUGS (2)
  1. ROCURONIUM BROMIDE [Suspect]
     Indication: MAINTENANCE OF ANAESTHESIA
  2. KETAMINE HYDROCHLORIDE [Suspect]
     Indication: INDUCTION AND MAINTENANCE OF ANAESTHESIA

REACTIONS (2)
  - Oxygen saturation decreased [Recovering/Resolving]
  - Supraventricular tachycardia [Recovering/Resolving]
